FAERS Safety Report 10309636 (Version 2)
Quarter: 2015Q2

REPORT INFORMATION
  Report Type: Spontaneous
  Country: RO (occurrence: RO)
  Receive Date: 20140717
  Receipt Date: 20150626
  Transmission Date: 20150821
  Serious: Yes (Hospitalization, Other)
  Sender: FDA-Public Use
  Company Number: RO-UCBSA-2014005742

PATIENT
  Age: 23 Year
  Sex: Male
  Weight: 80 kg

DRUGS (10)
  1. TIENAM [Concomitant]
     Active Substance: CILASTATIN SODIUM\IMIPENEM
     Indication: INFECTION
     Dosage: 2 G, ONCE DAILY (QD)
     Route: 042
     Dates: start: 20140524, end: 20140527
  2. VANCOMYCIN [Concomitant]
     Active Substance: VANCOMYCIN
     Indication: INFECTION
     Dosage: 2 G, ONCE DAILY (QD)
     Route: 042
     Dates: start: 20140524, end: 20140602
  3. COLISTINA [Concomitant]
     Active Substance: COLISTIMETHATE SODIUM
     Indication: INFECTION
     Dosage: 9000000 UI, ONCE DAILY (QD)
     Route: 042
     Dates: start: 20140627, end: 20140630
  4. AVELOX [Concomitant]
     Active Substance: MOXIFLOXACIN HYDROCHLORIDE
     Indication: INFECTION
     Dosage: 400 MG, ONCE DAILY (QD)
     Route: 048
     Dates: start: 20140527, end: 20140610
  5. FLUCONAZOLE. [Concomitant]
     Active Substance: FLUCONAZOLE
     Indication: INFECTION
     Dosage: 200 MG, ONCE DAILY (QD)
     Route: 042
     Dates: start: 20140619, end: 20140630
  6. TARGOCID [Concomitant]
     Active Substance: TEICOPLANIN
     Indication: INFECTION
     Dosage: 400 MG, ONCE DAILY (QD)
     Route: 042
     Dates: start: 20140625, end: 20140630
  7. KEPPRA [Suspect]
     Active Substance: LEVETIRACETAM
     Dosage: 500 MG, 4X/DAY (QID)
     Route: 048
     Dates: start: 20140612, end: 20140626
  8. VANCOMYCIN [Concomitant]
     Active Substance: VANCOMYCIN
     Dosage: 1 G, ONCE DAILY (QD)
     Route: 042
     Dates: start: 20140623, end: 20140630
  9. MERONEM [Concomitant]
     Active Substance: MEROPENEM
     Indication: INFECTION
     Dosage: 6 G, ONCE DAILY (QD)
     Route: 042
     Dates: start: 20140618, end: 20140630
  10. KEPPRA [Suspect]
     Active Substance: LEVETIRACETAM
     Dosage: 500 MG, 2X/DAY (BID)
     Route: 048
     Dates: start: 20140604, end: 20140611

REACTIONS (4)
  - Hypoxic-ischaemic encephalopathy [Unknown]
  - Cardiac arrest [Unknown]
  - Clostridium difficile colitis [Unknown]
  - Pyrexia [Recovered/Resolved]

NARRATIVE: CASE EVENT DATE: 20140608
